FAERS Safety Report 20582767 (Version 1)
Quarter: 2022Q1

REPORT INFORMATION
  Report Type: Report from Study
  Country: US (occurrence: US)
  Receive Date: 20220311
  Receipt Date: 20220311
  Transmission Date: 20220424
  Serious: No
  Sender: FDA-Public Use
  Company Number: US-GLAXOSMITHKLINE-US2022AMR006683

PATIENT
  Age: 69 Year
  Sex: Male

DRUGS (1)
  1. BELANTAMAB MAFODOTIN [Suspect]
     Active Substance: BELANTAMAB MAFODOTIN
     Indication: Product used for unknown indication
     Dosage: UNK

REACTIONS (6)
  - Keratopathy [Unknown]
  - Visual acuity reduced [Unknown]
  - Night blindness [Recovered/Resolved]
  - Photophobia [Recovered/Resolved]
  - Diplopia [Recovered/Resolved]
  - Corneal epithelial microcysts [Recovered/Resolved]

NARRATIVE: CASE EVENT DATE: 20220107
